FAERS Safety Report 18846895 (Version 1)
Quarter: 2021Q1

REPORT INFORMATION
  Report Type: Report from Study
  Country: US (occurrence: US)
  Receive Date: 20210203
  Receipt Date: 20210203
  Transmission Date: 20210419
  Serious: No
  Sender: FDA-Public Use
  Company Number: US-EXELIXIS-CABO-20028916

PATIENT
  Sex: Female

DRUGS (2)
  1. CABOMETYX [Suspect]
     Active Substance: CABOZANTINIB S-MALATE
     Indication: RENAL CELL CARCINOMA
     Dosage: 60 MG, QD
     Dates: start: 20200310
  2. XANAX [Concomitant]
     Active Substance: ALPRAZOLAM

REACTIONS (8)
  - Weight fluctuation [Unknown]
  - International normalised ratio decreased [Unknown]
  - Pain in extremity [Unknown]
  - Pruritus [Unknown]
  - Constipation [Recovered/Resolved]
  - Diarrhoea [Unknown]
  - Fatigue [Unknown]
  - Nausea [Recovered/Resolved]
